FAERS Safety Report 13746317 (Version 7)
Quarter: 2019Q1

REPORT INFORMATION
  Report Type: Spontaneous
  Country: CA (occurrence: CA)
  Receive Date: 20170712
  Receipt Date: 20190120
  Transmission Date: 20190417
  Serious: Yes (Other)
  Sender: FDA-Public Use
  Company Number: CA-CELLTRION INC.-2017CA004502

PATIENT

DRUGS (6)
  1. INFLECTRA [Suspect]
     Active Substance: INFLIXIMAB-DYYB
     Dosage: 550 MG, CYCLIC (EVERY 6 WEEKS)
     Dates: start: 20181002
  2. SALOFALK [Concomitant]
     Active Substance: MESALAMINE
     Dosage: UNK
     Route: 054
  3. INFLECTRA [Suspect]
     Active Substance: INFLIXIMAB-DYYB
     Dosage: 600 MG, CYCLIC (EVERY 4 WEEKS)
     Route: 042
     Dates: start: 20170807, end: 20171030
  4. INFLECTRA [Suspect]
     Active Substance: INFLIXIMAB-DYYB
     Dosage: 450 MG, CYCLIC (EVERY 8 WEEKS)
     Route: 042
     Dates: start: 20170704, end: 2017
  5. INFLECTRA [Suspect]
     Active Substance: INFLIXIMAB-DYYB
     Indication: CROHN^S DISEASE
     Dosage: 300 MG, CYCLIC (EACH 0, 2, 6 WEEKS, THEN EVERY 8 WEEKS FOR 12 MONTHS)
     Route: 042
     Dates: start: 20170328, end: 20170704
  6. INFLECTRA [Suspect]
     Active Substance: INFLIXIMAB-DYYB
     Dosage: 450 MG, CYCLIC (EVERY 6 WEEKS)
     Route: 042
     Dates: start: 20171213, end: 20180529

REACTIONS (12)
  - Heart rate decreased [Unknown]
  - Hyperaesthesia [Unknown]
  - Nausea [Unknown]
  - Weight increased [Unknown]
  - Dizziness [Unknown]
  - Dermoid cyst [Unknown]
  - Asthenia [Unknown]
  - Fatigue [Unknown]
  - Product use issue [Unknown]
  - Anal incontinence [Recovering/Resolving]
  - Hypotension [Unknown]
  - Vein rupture [Unknown]

NARRATIVE: CASE EVENT DATE: 2017
